FAERS Safety Report 6010863-4 (Version None)
Quarter: 2008Q4

REPORT INFORMATION
  Report Type: 
  Country: None (occurrence: None)
  Receive Date: 20081218
  Receipt Date: 20081210
  Transmission Date: 20090506
  Serious: Yes (Hospitalization)
  Sender: FDA-Public Use
  Company Number: ES-ABBOTT-08P-144-0492154-00

PATIENT
  Age: 40 Year
  Sex: Male

DRUGS (4)
  1. NORVIR [Suspect]
     Indication: HIV INFECTION
     Route: 048
     Dates: start: 20080701, end: 20080922
  2. FOSAMPRENAVIR [Interacting]
     Indication: HIV INFECTION
     Route: 048
     Dates: start: 20080701, end: 20080922
  3. EMTRICITABINE W/TENOFOVIR [Interacting]
     Indication: HIV INFECTION
     Route: 048
     Dates: start: 20080701, end: 20080922
  4. OLANZAPINE [Interacting]
     Indication: DRUG USE FOR UNKNOWN INDICATION
     Route: 048
     Dates: start: 20080101, end: 20080922

REACTIONS (2)
  - CHOLESTASIS [None]
  - DRUG INTERACTION [None]
